FAERS Safety Report 4556431-2 (Version None)
Quarter: 2005Q1

REPORT INFORMATION
  Report Type: 
  Country: None (occurrence: None)
  Receive Date: 20050120
  Receipt Date: 20050113
  Transmission Date: 20050727
  Serious: Yes (Other)
  Sender: FDA-Public Use
  Company Number: PHEH2005US00897

PATIENT
  Sex: Male

DRUGS (2)
  1. ETHANOL [Suspect]
     Route: 048
  2. LAMISIL [Suspect]
     Indication: NAIL TINEA
     Route: 048
     Dates: start: 20041015

REACTIONS (3)
  - AMNESIA [None]
  - DRUG INTERACTION [None]
  - LOSS OF CONSCIOUSNESS [None]
